FAERS Safety Report 5159275-6 (Version None)
Quarter: 2006Q4

REPORT INFORMATION
  Report Type: 
  Country: None (occurrence: None)
  Receive Date: 20061120
  Receipt Date: 20061108
  Transmission Date: 20070319
  Serious: Yes (Hospitalization, Disabling)
  Sender: FDA-Public Use
  Company Number: 111150ISR

PATIENT
  Age: 90 Year
  Sex: Male

DRUGS (3)
  1. SIMVASTATIN [Suspect]
     Indication: BLOOD CHOLESTEROL INCREASED
     Dosage: (10 MG, 1 IN 1 D), ORAL
     Route: 048
     Dates: start: 20060508, end: 20060616
  2. ACETYLSALICYLIC ACID SRT [Concomitant]
  3. DICLOFENAC SODIUM [Concomitant]

REACTIONS (2)
  - HAEMATURIA [None]
  - HAEMORRHAGE [None]
